FAERS Safety Report 25590591 (Version 1)
Quarter: 2025Q3

REPORT INFORMATION
  Report Type: Spontaneous
  Country: US (occurrence: US)
  Receive Date: 20250722
  Receipt Date: 20250722
  Transmission Date: 20251021
  Serious: Yes (Other)
  Sender: ALEXION PHARMACEUTICALS
  Company Number: US-ASTRAZENECA-202507GLO012286US

PATIENT
  Sex: Female

DRUGS (13)
  1. NEXIUM [Suspect]
     Active Substance: ESOMEPRAZOLE MAGNESIUM
     Route: 065
  2. ALBUTEROL [Concomitant]
     Active Substance: ALBUTEROL
  3. DEXTROMETHORPHAN [Concomitant]
     Active Substance: DEXTROMETHORPHAN
  4. LISINOPRIL [Concomitant]
     Active Substance: LISINOPRIL
  5. POTASSIUM GLUCONATE [Concomitant]
     Active Substance: POTASSIUM GLUCONATE
  6. FERROUS SULFATE [Concomitant]
     Active Substance: FERROUS SULFATE
  7. CYANOCOBALAMIN [Concomitant]
     Active Substance: CYANOCOBALAMIN
  8. ASPIRIN [Concomitant]
     Active Substance: ASPIRIN
  9. ASCORBIC ACID [Concomitant]
     Active Substance: ASCORBIC ACID
  10. MELOXICAM [Concomitant]
     Active Substance: MELOXICAM
  11. GEMFIBROZIL [Concomitant]
     Active Substance: GEMFIBROZIL
  12. CLARITHROMYCIN [Concomitant]
     Active Substance: CLARITHROMYCIN
  13. PSYLLIUM [Concomitant]
     Active Substance: PLANTAGO SEED

REACTIONS (1)
  - Gastric cancer [Unknown]
